FAERS Safety Report 10248009 (Version 1)
Quarter: 2014Q2

REPORT INFORMATION
  Report Type: Spontaneous
  Country: JP (occurrence: JP)
  Receive Date: 20140619
  Receipt Date: 20140619
  Transmission Date: 20141212
  Serious: Yes (Hospitalization)
  Sender: FDA-Public Use
  Company Number: PHHY2014JP075446

PATIENT
  Age: 84 Year
  Sex: Female

DRUGS (1)
  1. EXFORGE [Suspect]
     Indication: HYPERTENSION
     Dosage: 1 DF (VALS 8/0MG, AMLO 5MG) DAILY
     Route: 048

REACTIONS (5)
  - Fall [Unknown]
  - Skin disorder [Recovered/Resolved]
  - Injury [Unknown]
  - Emotional disorder [Unknown]
  - Blood pressure decreased [Unknown]
